FAERS Safety Report 6269610-3 (Version None)
Quarter: 2009Q3

REPORT INFORMATION
  Report Type: 
  Country: None (occurrence: None)
  Receive Date: 20090714
  Receipt Date: 20090702
  Transmission Date: 20100115
  Serious: Yes (Other)
  Sender: FDA-Public Use
  Company Number: 1-19038424

PATIENT
  Age: 48 Year
  Sex: Male
  Weight: 79.3795 kg

DRUGS (2)
  1. CLOTRIMAZOLE/BETAMETHASONE DIPROPIONATE LOTION USP 1% [Suspect]
     Indication: EAR INFECTION FUNGAL
     Dosage: 2-3 DROPS,1-2X DAILY, AURICULAR (OTIC)
     Route: 001
     Dates: start: 20090615, end: 20090626
  2. AMOXICILLIN/ CLAVULANATE (GENERIC FOR AUGMENTIN) [Concomitant]

REACTIONS (4)
  - FATIGUE [None]
  - OFF LABEL USE [None]
  - TINNITUS [None]
  - TYMPANIC MEMBRANE PERFORATION [None]
